FAERS Safety Report 6811494-6 (Version None)
Quarter: 2010Q2

REPORT INFORMATION
  Report Type: 
  Country: None (occurrence: None)
  Receive Date: 20100625
  Receipt Date: 20100615
  Transmission Date: 20101027
  Serious: Yes (Other)
  Sender: FDA-Public Use
  Company Number: AMI0022103

PATIENT

DRUGS (1)
  1. SYPRINE [Suspect]
     Indication: HEPATO-LENTICULAR DEGENERATION
     Dosage: 047

REACTIONS (2)
  - COMPLEX PARTIAL SEIZURES [None]
  - GRAND MAL CONVULSION [None]
